FAERS Safety Report 5113824-2 (Version None)
Quarter: 2006Q3

REPORT INFORMATION
  Report Type: 
  Country: None (occurrence: None)
  Receive Date: 20060920
  Receipt Date: 20060906
  Transmission Date: 20061208
  Serious: Yes (Hospitalization, Other)
  Sender: FDA-Public Use
  Company Number: DE200609001329

PATIENT
  Age: 50 Year
  Sex: Male

DRUGS (6)
  1. GEMZAR [Suspect]
     Indication: PANCREATIC CARCINOMA
  2. TORSEMIDE [Concomitant]
  3. DURAGESIC-100 [Concomitant]
  4. MCP (METOCLOPRAMIDE HYDROCHLORIDE) [Concomitant]
  5. MOVICOL (MACROGOL, POTASSIUM CHLORIDE, SODIUM BICARBONATE, SODIUM CHLO [Concomitant]
  6. DIURETICS [Concomitant]

REACTIONS (7)
  - ASCITES [None]
  - GENERALISED OEDEMA [None]
  - HYPOALBUMINAEMIA [None]
  - LUNG INFILTRATION [None]
  - NEPHROTIC SYNDROME [None]
  - PLEURAL EFFUSION [None]
  - ULCER HAEMORRHAGE [None]
